FAERS Safety Report 9565964 (Version 1)
Quarter: 2013Q3

REPORT INFORMATION
  Report Type: Spontaneous
  Country: CL (occurrence: CL)
  Receive Date: 20130930
  Receipt Date: 20130930
  Transmission Date: 20140515
  Serious: Yes (Death, Hospitalization)
  Sender: FDA-Public Use
  Company Number: CL-ASTRAZENECA-2013SE71691

PATIENT
  Age: 3 Month
  Sex: Male

DRUGS (1)
  1. SYNAGIS [Suspect]
     Indication: ANTIVIRAL PROPHYLAXIS
     Route: 030
     Dates: start: 20130619, end: 20130619

REACTIONS (8)
  - Multi-organ failure [Fatal]
  - Cardiogenic shock [Fatal]
  - Viral myocarditis [Fatal]
  - Pneumonia respiratory syncytial viral [Fatal]
  - Respiratory failure [Fatal]
  - Apnoea [Fatal]
  - Pneumothorax [Fatal]
  - Arrhythmia [Fatal]
